FAERS Safety Report 10643489 (Version 4)
Quarter: 2015Q2

REPORT INFORMATION
  Report Type: Spontaneous
  Country: US (occurrence: US)
  Receive Date: 20141210
  Receipt Date: 20150427
  Transmission Date: 20150821
  Serious: Yes (Other)
  Sender: FDA-Public Use
  Company Number: US-009507513-1110USA03465

PATIENT
  Sex: Male
  Weight: 47.17 kg

DRUGS (4)
  1. PROSCAR [Suspect]
     Active Substance: FINASTERIDE
     Indication: ALOPECIA
     Dosage: 1.25 MG, QD
     Route: 048
     Dates: start: 20050712, end: 20060315
  2. PROPECIA [Suspect]
     Active Substance: FINASTERIDE
     Dosage: 1 MG QD
     Route: 048
     Dates: start: 20050312
  3. FINASTERIDE. [Suspect]
     Active Substance: FINASTERIDE
     Indication: ALOPECIA
     Dosage: 1.25 MG, QD
     Dates: start: 20060715, end: 20110406
  4. PROPECIA [Suspect]
     Active Substance: FINASTERIDE
     Indication: ALOPECIA
     Dosage: 1.25 MG, QD
     Route: 048
     Dates: start: 20050312, end: 20110608

REACTIONS (14)
  - Arthralgia [Unknown]
  - Depression [Recovered/Resolved]
  - Fatigue [Recovered/Resolved]
  - Sexual dysfunction [Unknown]
  - Libido decreased [Unknown]
  - Ejaculation disorder [Unknown]
  - Wrong technique in drug usage process [Unknown]
  - Overdose [Unknown]
  - Anxiety [Recovered/Resolved]
  - Drug administration error [Unknown]
  - Ejaculation failure [Unknown]
  - Suicidal ideation [Unknown]
  - Cognitive disorder [Unknown]
  - Erectile dysfunction [Unknown]

NARRATIVE: CASE EVENT DATE: 20050712
